FAERS Safety Report 17040488 (Version 1)
Quarter: 2019Q4

REPORT INFORMATION
  Report Type: Not Available
  Country: US (occurrence: US)
  Receive Date: 20191117
  Receipt Date: 20191117
  Transmission Date: 20200122
  Serious: No
  Sender: FDA-Public Use
  Company Number: US-NEUROCRINE BIOSCIENCES INC.-2019NBI03428

PATIENT
  Sex: Male

DRUGS (21)
  1. BENZTROPINE. [Concomitant]
     Active Substance: BENZTROPINE
  2. BUSPIRONE [Concomitant]
     Active Substance: BUSPIRONE HYDROCHLORIDE
  3. SERTRALINE [Concomitant]
     Active Substance: SERTRALINE HYDROCHLORIDE
  4. OXYCODONE [Concomitant]
     Active Substance: OXYCODONE
  5. OMEPRAZOLE. [Concomitant]
     Active Substance: OMEPRAZOLE
  6. DICLOFENAC [Concomitant]
     Active Substance: DICLOFENAC
  7. LANTUS [Concomitant]
     Active Substance: INSULIN GLARGINE
  8. MIRTAZAPINE. [Concomitant]
     Active Substance: MIRTAZAPINE
  9. METOPROLOL ER [Concomitant]
     Active Substance: METOPROLOL SUCCINATE
  10. LISINOPRIL. [Concomitant]
     Active Substance: LISINOPRIL
  11. ASPIRIN EC [Concomitant]
     Active Substance: ASPIRIN
  12. ONDANSETRON [Concomitant]
     Active Substance: ONDANSETRON
  13. LASIX [Concomitant]
     Active Substance: FUROSEMIDE
  14. INGREZZA [Suspect]
     Active Substance: VALBENAZINE
     Indication: TARDIVE DYSKINESIA
     Route: 048
  15. NITROGLYCERIN. [Concomitant]
     Active Substance: NITROGLYCERIN
  16. ATORVASTATIN [Concomitant]
     Active Substance: ATORVASTATIN
  17. IMDUR [Concomitant]
     Active Substance: ISOSORBIDE MONONITRATE
  18. METFORMIN [Concomitant]
     Active Substance: METFORMIN HYDROCHLORIDE
  19. SEROQUEL [Concomitant]
     Active Substance: QUETIAPINE FUMARATE
  20. SINEMET [Concomitant]
     Active Substance: CARBIDOPA\LEVODOPA
  21. BRILINTA [Concomitant]
     Active Substance: TICAGRELOR

REACTIONS (2)
  - Nausea [Unknown]
  - Dizziness [Unknown]
